FAERS Safety Report 11031607 (Version 1)
Quarter: 2015Q2

REPORT INFORMATION
  Report Type: Spontaneous
  Country: US (occurrence: US)
  Receive Date: 20150415
  Receipt Date: 20150415
  Transmission Date: 20150821
  Serious: No
  Sender: FDA-Public Use
  Company Number: US-SA-2014SA091946

PATIENT
  Sex: Female

DRUGS (13)
  1. QUINAPRIL [Concomitant]
     Active Substance: QUINAPRIL\QUINAPRIL HYDROCHLORIDE
  2. ATORVASTATIN [Concomitant]
     Active Substance: ATORVASTATIN
  3. COUMADIN [Concomitant]
     Active Substance: WARFARIN SODIUM
     Dosage: DOSE: 1 MG ONE DAILY + 1.5 MG MONDAY-WEDNESDAY-FRIDAY
  4. L-THYROXINE [Concomitant]
     Active Substance: LEVOTHYROXINE
     Dosage: DOSE: 50 MEQ ONE DAILY THEN NEXT DAY 50 MCG ONE DAILY
  5. XANAX [Concomitant]
     Active Substance: ALPRAZOLAM
     Dosage: DOSE: 0.5 MG 1/2-ONE-TWO AT HS RARELY
  6. DILTIAZEM [Concomitant]
     Active Substance: DILTIAZEM
  7. KCL [Concomitant]
     Active Substance: POTASSIUM CHLORIDE
  8. HYDROCHLOROTHIAZIDE/TRIAMTERENE [Concomitant]
  9. LYRICA [Concomitant]
     Active Substance: PREGABALIN
  10. PERCOCET [Concomitant]
     Active Substance: ACETAMINOPHEN\OXYCODONE HYDROCHLORIDE
     Dosage: DOSE: 5/325 MG ONE EVERY SIX HOURS PRN (USES 5 DAILY)
  11. DEMEROL [Suspect]
     Active Substance: MEPERIDINE HYDROCHLORIDE
     Indication: PRODUCT USED FOR UNKNOWN INDICATION
     Route: 065
  12. FLOVENT [Concomitant]
     Active Substance: FLUTICASONE PROPIONATE
  13. CELEBREX [Concomitant]
     Active Substance: CELECOXIB

REACTIONS (2)
  - Hypersensitivity [Unknown]
  - Headache [Unknown]
